FAERS Safety Report 7361594-X (Version None)
Quarter: 2011Q1

REPORT INFORMATION
  Report Type: 
  Country: None (occurrence: None)
  Receive Date: 20110318
  Receipt Date: 20110308
  Transmission Date: 20110831
  Serious: Yes (Hospitalization, Disabling)
  Sender: FDA-Public Use
  Company Number: US-EISAI INC-E7389-01141-CLI-US

PATIENT
  Sex: Female

DRUGS (29)
  1. SIMVASTATIN [Concomitant]
     Indication: HYPERCHOLESTEROLAEMIA
     Route: 048
     Dates: start: 20030101
  2. DETROL LA [Concomitant]
     Indication: INCONTINENCE
     Route: 048
     Dates: start: 20010101
  3. TESSALON [Concomitant]
     Indication: PAIN
  4. VITAMIN D [Concomitant]
     Indication: OSTEOPENIA
     Route: 048
     Dates: start: 20050101
  5. TYLENOL-500 [Concomitant]
     Indication: HEADACHE
     Route: 048
     Dates: start: 20100910
  6. ASCORBIC ACID [Concomitant]
     Route: 048
     Dates: start: 20050101
  7. METOPROLOL TARTRATE [Concomitant]
     Indication: HYPERTENSION
     Route: 048
     Dates: start: 20090724
  8. VITAMIN B6 [Concomitant]
     Route: 048
     Dates: start: 20100301
  9. ALOXI [Concomitant]
     Route: 042
     Dates: start: 20100813, end: 20100813
  10. ASPIRIN [Concomitant]
     Route: 048
     Dates: start: 19990101
  11. OMEPRAZOLE [Concomitant]
     Route: 048
     Dates: start: 19890101
  12. ALPRAZOLAM [Concomitant]
     Indication: ANXIETY
     Route: 048
     Dates: start: 20100506
  13. ALOXI [Concomitant]
     Route: 042
     Dates: start: 20100923, end: 20100923
  14. FOLIC ACID [Concomitant]
     Route: 048
     Dates: start: 20100805
  15. TRIAMCINOLONE ACETONIDE [Concomitant]
     Indication: RASH
     Route: 061
     Dates: start: 20090801
  16. ZOLOFT [Concomitant]
     Indication: DEPRESSION
     Route: 048
     Dates: start: 20100301
  17. ALOXI [Concomitant]
     Indication: NAUSEA
     Route: 042
     Dates: start: 20101014, end: 20101014
  18. FEXOFENADINE [Concomitant]
     Dosage: UNKOWN
     Route: 048
     Dates: start: 20070101
  19. E7389 (BOLD) [Suspect]
     Indication: NON-SMALL CELL LUNG CANCER
     Route: 041
     Dates: start: 20100813
  20. PEMETREXED [Suspect]
     Indication: NON-SMALL CELL LUNG CANCER
     Route: 041
     Dates: start: 20100813
  21. ATIVAN [Concomitant]
     Indication: ANXIETY
     Route: 048
     Dates: start: 20090811
  22. CALCIUM [Concomitant]
     Indication: OSTEOPENIA
     Route: 048
     Dates: start: 20050101
  23. TESSALON [Concomitant]
     Route: 048
     Dates: start: 20110113
  24. VICODIN [Concomitant]
     Indication: PAIN
     Route: 048
     Dates: start: 20090821
  25. IBUPROFEN [Concomitant]
     Route: 048
     Dates: start: 20090903
  26. FISH OIL [Concomitant]
     Route: 048
     Dates: start: 20000101
  27. ALOXI [Concomitant]
     Route: 042
     Dates: start: 20100902, end: 20100902
  28. MULTI-VITAMINS [Concomitant]
     Route: 048
     Dates: start: 20000101
  29. DEXAMETHASONE [Concomitant]
     Route: 048
     Dates: start: 20100812

REACTIONS (3)
  - CHEST PAIN [None]
  - PULMONARY EMBOLISM [None]
  - DYSPNOEA [None]
